FAERS Safety Report 8564179-2 (Version None)
Quarter: 2012Q3

REPORT INFORMATION
  Report Type: 
  Country: None (occurrence: None)
  Receive Date: 20120803
  Receipt Date: 20120725
  Transmission Date: 20120928
  Serious: Yes (Hospitalization)
  Sender: FDA-Public Use
  Company Number: US-JNJFOC-20120715156

PATIENT
  Sex: Male

DRUGS (2)
  1. REMICADE [Suspect]
     Indication: RHEUMATOID ARTHRITIS
     Route: 042
     Dates: start: 20110901
  2. REMICADE [Suspect]
     Route: 042
     Dates: start: 20120126

REACTIONS (2)
  - ADVERSE EVENT [None]
  - SPINAL COLUMN STENOSIS [None]
